FAERS Safety Report 4313281-X (Version None)
Quarter: 2004Q1

REPORT INFORMATION
  Report Type: 
  Country: None (occurrence: None)
  Receive Date: 20040305
  Receipt Date: 20040305
  Transmission Date: 20041129
  Serious: No
  Sender: FDA-Public Use
  Company Number: None

PATIENT
  Sex: Male
  Weight: 64.8 kg

DRUGS (4)
  1. ARA-C [Suspect]
     Indication: ACUTE MYELOID LEUKAEMIA
     Dosage: PER CCQ-2961
  2. VP-16 [Suspect]
     Indication: ACUTE MYELOID LEUKAEMIA
  3. 6 THIOGUANINE [Suspect]
     Indication: ACUTE MYELOID LEUKAEMIA
  4. DEXAMETHASONE [Suspect]
     Indication: ACUTE MYELOID LEUKAEMIA

REACTIONS (5)
  - BLOOD CULTURE POSITIVE [None]
  - CAECITIS [None]
  - GLYCOPEPTIDE ANTIBIOTIC RESISTANT ENTEROCOCCAL INFECTION [None]
  - HYPOTHERMIA [None]
  - PNEUMONIA [None]
